FAERS Safety Report 13566975 (Version 1)
Quarter: 2017Q2

REPORT INFORMATION
  Report Type: Spontaneous
  Country: US (occurrence: US)
  Receive Date: 20170519
  Receipt Date: 20170519
  Transmission Date: 20170830
  Serious: Yes (Other)
  Sender: FDA-Public Use
  Company Number: None

PATIENT
  Sex: Female
  Weight: 63 kg

DRUGS (1)
  1. ESCITALOPRAM [Suspect]
     Active Substance: ESCITALOPRAM OXALATE
     Indication: ADJUSTMENT DISORDER
     Route: 048
     Dates: start: 20170201, end: 20170202

REACTIONS (3)
  - Asthenia [None]
  - Nausea [None]
  - Palpitations [None]

NARRATIVE: CASE EVENT DATE: 20170202
